FAERS Safety Report 15703952 (Version 3)
Quarter: 2018Q4

REPORT INFORMATION
  Report Type: Spontaneous
  Country: US (occurrence: US)
  Receive Date: 20181210
  Receipt Date: 20181219
  Transmission Date: 20190205
  Serious: No
  Sender: FDA-Public Use
  Company Number: US-BIOGEN-2018BI00666959

PATIENT
  Sex: Male

DRUGS (1)
  1. SPINRAZA [Suspect]
     Active Substance: NUSINERSEN
     Indication: SPINAL MUSCULAR ATROPHY
     Route: 065

REACTIONS (17)
  - Asthenia [Unknown]
  - Malaise [Unknown]
  - Oxygen saturation decreased [Unknown]
  - Pain [Unknown]
  - Back pain [Unknown]
  - Pyrexia [Unknown]
  - Rhinorrhoea [Unknown]
  - Procedural nausea [Unknown]
  - Injection site pain [Recovered/Resolved]
  - Respiratory tract congestion [Unknown]
  - Nasopharyngitis [Unknown]
  - Neuralgia [Recovered/Resolved]
  - General symptom [Unknown]
  - Vomiting [Unknown]
  - Cough [Unknown]
  - Neck pain [Unknown]
  - Post lumbar puncture syndrome [Unknown]
